FAERS Safety Report 5061425-7 (Version None)
Quarter: 2006Q3

REPORT INFORMATION
  Report Type: 
  Country: None (occurrence: None)
  Receive Date: 20060719
  Receipt Date: 20060719
  Transmission Date: 20061208
  Serious: Yes (Hospitalization)
  Sender: FDA-Public Use
  Company Number: None

PATIENT
  Age: 50 Year
  Sex: Male

DRUGS (8)
  1. NAPROXEN [Suspect]
     Indication: PAIN
     Dosage: 375 MG BID
     Dates: start: 20060222
  2. CLOPIDOGREL [Suspect]
     Indication: CORONARY ARTERY DISEASE
     Dosage: 75 MG QD
     Dates: start: 20060222
  3. GABAPENTIN [Concomitant]
  4. ASPIRIN [Concomitant]
  5. BACLOFEN [Concomitant]
  6. GEMFIBROZIL [Concomitant]
  7. ZOCOR [Concomitant]
  8. TRAMADOL [Concomitant]

REACTIONS (1)
  - ULCER HAEMORRHAGE [None]
